FAERS Safety Report 11094026 (Version 6)
Quarter: 2016Q1

REPORT INFORMATION
  Report Type: Report from Study
  Country: BR (occurrence: BR)
  Receive Date: 20150506
  Receipt Date: 20160317
  Transmission Date: 20160525
  Serious: Yes (Other)
  Sender: FDA-Public Use
  Company Number: PHHY2015BR028761

PATIENT
  Age: 58 Year
  Sex: Female
  Weight: 53 kg

DRUGS (8)
  1. AFINITOR [Suspect]
     Active Substance: EVEROLIMUS
     Dosage: 10 MG, QOD (CONTINOUS ON SATURDAY AND SUNDAY)
     Route: 048
     Dates: start: 201502
  2. AROMASIN [Concomitant]
     Active Substance: EXEMESTANE
     Indication: BREAST CANCER METASTATIC
     Dosage: 25 MG, QD
     Route: 048
     Dates: start: 2005
  3. AFINITOR [Suspect]
     Active Substance: EVEROLIMUS
     Indication: BREAST CANCER METASTATIC
     Dosage: 10 MG, QD
     Route: 048
     Dates: start: 20141022, end: 201412
  4. AFINITOR [Suspect]
     Active Substance: EVEROLIMUS
     Dosage: 10 MG, QW5 (FROM MONDAY TO FRIDAY)
     Route: 048
     Dates: start: 201412, end: 201502
  5. AFINITOR [Suspect]
     Active Substance: EVEROLIMUS
     Dosage: 10 MG, QW4 (SUNDAY, MONDAY, WEDNESDAY AND FRIDAY)
     Route: 048
     Dates: start: 20150227
  6. ZOMETA [Concomitant]
     Active Substance: ZOLEDRONIC ACID
     Indication: BREAST CANCER METASTATIC
     Dosage: 1 DF, EVERY 2 MONTHS
     Route: 042
  7. AFINITOR [Suspect]
     Active Substance: EVEROLIMUS
     Dosage: 10 MG, QW5 (SUNDAY, MONDAY, WEDNESDAY, THURSDAY AND FRIDAY)
     Route: 048
  8. AROMASIN [Concomitant]
     Active Substance: EXEMESTANE
     Dosage: 1 DF, QD
     Route: 048

REACTIONS (26)
  - Wound complication [Recovering/Resolving]
  - Decreased appetite [Recovering/Resolving]
  - Nail growth abnormal [Unknown]
  - Inflammation [Recovering/Resolving]
  - Off label use [Unknown]
  - Stomatitis necrotising [Recovering/Resolving]
  - Ageusia [Not Recovered/Not Resolved]
  - Mass [Unknown]
  - Muscle atrophy [Unknown]
  - Dysarthria [Recovering/Resolving]
  - Acne [Recovered/Resolved]
  - Oral candidiasis [Recovering/Resolving]
  - Oral pain [Unknown]
  - Aphthous ulcer [Recovered/Resolved]
  - Oral mucosal blistering [Recovering/Resolving]
  - Oral discomfort [Recovering/Resolving]
  - Onychoclasis [Not Recovered/Not Resolved]
  - Weight decreased [Not Recovered/Not Resolved]
  - Malaise [Recovering/Resolving]
  - Skin wrinkling [Not Recovered/Not Resolved]
  - Stomatitis [Recovering/Resolving]
  - Drug intolerance [Unknown]
  - Upper respiratory tract inflammation [Recovering/Resolving]
  - Feeding disorder [Recovering/Resolving]
  - Acne [Unknown]
  - Drug ineffective [Unknown]

NARRATIVE: CASE EVENT DATE: 201410
